FAERS Safety Report 4827517-X (Version None)
Quarter: 2005Q4

REPORT INFORMATION
  Report Type: 
  Country: None (occurrence: None)
  Receive Date: 20051114
  Receipt Date: 20051102
  Transmission Date: 20060501
  Serious: Yes (Death)
  Sender: FDA-Public Use
  Company Number: US-JNJFOC-20050802916

PATIENT
  Sex: Female
  Weight: 90.72 kg

DRUGS (18)
  1. REMICADE [Suspect]
     Indication: WRONG DRUG ADMINISTERED
     Route: 042
  2. NORVASC [Concomitant]
  3. AVALIDE [Concomitant]
  4. AVALIDE [Concomitant]
  5. HUMULIN [Concomitant]
  6. HUMULIN [Concomitant]
  7. ZOLOFT [Concomitant]
  8. EFFEXOR [Concomitant]
  9. MOBIC [Concomitant]
  10. LASIX [Concomitant]
  11. LOVENOX [Concomitant]
  12. GLUCOPHAGE [Concomitant]
  13. NEXIUM [Concomitant]
  14. LIPITOR [Concomitant]
  15. VICODIN [Concomitant]
  16. VICODIN [Concomitant]
  17. ASPIRIN [Concomitant]
  18. ARIDIA [Concomitant]

REACTIONS (2)
  - DRUG ADMINISTRATION ERROR [None]
  - LUNG CANCER METASTATIC [None]
